FAERS Safety Report 4347519-X (Version None)
Quarter: 2004Q2

REPORT INFORMATION
  Report Type: 
  Country: None (occurrence: None)
  Receive Date: 20040421
  Receipt Date: 20040209
  Transmission Date: 20050107
  Serious: Yes (Other)
  Sender: FDA-Public Use
  Company Number: 2004008668

PATIENT
  Age: 50 Year

DRUGS (1)
  1. RELPAX [Suspect]

REACTIONS (1)
  - ERECTILE DYSFUNCTION [None]
